FAERS Safety Report 8664623 (Version 2)
Quarter: 2013Q4

REPORT INFORMATION
  Report Type: Spontaneous
  Country: BR (occurrence: BR)
  Receive Date: 20120713
  Receipt Date: 20131101
  Transmission Date: 20140711
  Serious: Yes (Other)
  Sender: FDA-Public Use
  Company Number: BR-MSD-1207BRA002396

PATIENT
  Sex: 0
  Weight: 70 kg

DRUGS (5)
  1. ESMERON [Suspect]
     Indication: ANAESTHESIA
  2. DIPRIVAN [Concomitant]
  3. FENTANYL [Concomitant]
  4. ULTIVA [Concomitant]
  5. DORMONID TABLETS [Concomitant]

REACTIONS (3)
  - Hypertensive crisis [Unknown]
  - Bradycardia [Unknown]
  - Rash [Unknown]
